FAERS Safety Report 17142279 (Version 1)
Quarter: 2019Q4

REPORT INFORMATION
  Report Type: Spontaneous
  Country: US (occurrence: US)
  Receive Date: 20191211
  Receipt Date: 20191211
  Transmission Date: 20200122
  Serious: No
  Sender: FDA-Public Use
  Company Number: US-JUBILANT CADISTA PHARMACEUTICALS-2019JUB00300

PATIENT
  Age: 73 Year
  Sex: Female
  Weight: 54.88 kg

DRUGS (10)
  1. METHYLPREDNISOLONE. [Suspect]
     Active Substance: METHYLPREDNISOLONE
     Indication: NECK PAIN
  2. UNSPECIFIED MEDICATIONS (^LONG LIST^) [Concomitant]
  3. CYMBALTA [Concomitant]
     Active Substance: DULOXETINE HYDROCHLORIDE
  4. MINOCYCLINE [Concomitant]
     Active Substance: MINOCYCLINE HYDROCHLORIDE
  5. METHYLPREDNISOLONE. [Suspect]
     Active Substance: METHYLPREDNISOLONE
     Indication: SCIATICA
     Dosage: ^AS DIRECTED PER THE LABELED DIRECTIONS^
     Route: 048
     Dates: start: 20190801
  6. COQ10 [Concomitant]
     Active Substance: UBIDECARENONE
  7. METHYLPREDNISOLONE. [Suspect]
     Active Substance: METHYLPREDNISOLONE
     Indication: ARTHRALGIA
  8. METHYLPREDNISOLONE. [Suspect]
     Active Substance: METHYLPREDNISOLONE
     Indication: BACK PAIN
  9. MULTIVITAMIN [Concomitant]
     Active Substance: VITAMINS
  10. CARTIA [Concomitant]

REACTIONS (2)
  - Nausea [Not Recovered/Not Resolved]
  - Diarrhoea [Unknown]

NARRATIVE: CASE EVENT DATE: 20190801
